FAERS Safety Report 4484496-5 (Version None)
Quarter: 2004Q3

REPORT INFORMATION
  Report Type: 
  Country: None (occurrence: None)
  Receive Date: 20040921
  Receipt Date: 20031211
  Transmission Date: 20050211
  Serious: Yes (Hospitalization)
  Sender: FDA-Public Use
  Company Number: 163-20785-03120339 (0)

PATIENT
  Age: 77 Year
  Sex: Male

DRUGS (1)
  1. THALOMID [Suspect]
     Indication: COLON CANCER
     Dosage: 150 MG, DAILY, ORAL
     Route: 048
     Dates: start: 20031029

REACTIONS (3)
  - ARRHYTHMIA [None]
  - INJURY [None]
  - SYNCOPE [None]
